FAERS Safety Report 5266557-6 (Version None)
Quarter: 2007Q1

REPORT INFORMATION
  Report Type: 
  Country: None (occurrence: None)
  Receive Date: 20070315
  Receipt Date: 20070220
  Transmission Date: 20070707
  Serious: Yes (Other)
  Sender: FDA-Public Use
  Company Number: US-BOEHRINGER INGELHEIM PHARMACEUTICALS, INC.-2006-BP-12876BP

PATIENT
  Age: 80 Year
  Sex: Male

DRUGS (2)
  1. MIRAPEX [Suspect]
     Route: 048
  2. REQUIP [Suspect]

REACTIONS (2)
  - PAEDOPHILIA [None]
  - SEXUAL ABUSE [None]
